FAERS Safety Report 6027519-4 (Version None)
Quarter: 2008Q4

REPORT INFORMATION
  Report Type: 
  Country: None (occurrence: None)
  Receive Date: 20081222
  Receipt Date: 20080902
  Transmission Date: 20090506
  Serious: No
  Sender: FDA-Public Use
  Company Number: US-WYE-H05706008

PATIENT
  Age: 74 Year
  Sex: Female
  Weight: 81.72 kg

DRUGS (5)
  1. PRISTIQ [Suspect]
     Indication: DEPRESSION
     Dosage: 50 MG 1X PER 1 DAY, ORAL
     Route: 048
     Dates: start: 20080814
  2. TRILEPTAL [Concomitant]
  3. RISPERDAL [Concomitant]
  4. ATIVAN [Concomitant]
  5. VITAMINS WITH MINERALS (VITAMINS WITH MINERALS) [Concomitant]

REACTIONS (4)
  - APATHY [None]
  - ASTHENIA [None]
  - DRUG INEFFECTIVE [None]
  - FATIGUE [None]
